FAERS Safety Report 4678823-3 (Version None)
Quarter: 2005Q2

REPORT INFORMATION
  Report Type: 
  Country: None (occurrence: None)
  Receive Date: 20050531
  Receipt Date: 20050525
  Transmission Date: 20051028
  Serious: Yes (Hospitalization)
  Sender: FDA-Public Use
  Company Number: 2005BI002425

PATIENT
  Age: 51 Year
  Sex: Female
  Weight: 90.7194 kg

DRUGS (2)
  1. AVONEX [Suspect]
     Indication: MULTIPLE SCLEROSIS
     Dosage: 30 UG; QW; IM
     Route: 030
     Dates: start: 20040805
  2. DILAUDID [Concomitant]

REACTIONS (5)
  - ANOXIA [None]
  - CHEST PAIN [None]
  - HEPATIC FAILURE [None]
  - RASH MACULO-PAPULAR [None]
  - THERAPEUTIC AGENT TOXICITY [None]
